FAERS Safety Report 8998202 (Version 2)
Quarter: 2013Q1

REPORT INFORMATION
  Report Type: Report from Study
  Country: JP (occurrence: JP)
  Receive Date: 20130104
  Receipt Date: 20130215
  Transmission Date: 20140127
  Serious: Yes (Other)
  Sender: FDA-Public Use
  Company Number: JP-ASTELLAS-2013US000094

PATIENT
  Age: 77 Year
  Sex: Female

DRUGS (20)
  1. ERLOTINIB TABLET [Suspect]
     Indication: ADENOCARCINOMA PANCREAS
     Dosage: 100 MG, UID/QD
     Route: 048
     Dates: start: 20120723, end: 20121116
  2. GEMCITABINE HYDROCHLORIDE [Suspect]
     Indication: ADENOCARCINOMA PANCREAS
     Dosage: 820 MG/M2, UID/QD
     Route: 041
     Dates: start: 20120723, end: 20120723
  3. GEMCITABINE HYDROCHLORIDE [Suspect]
     Dosage: 820 MG/M2, UID/QD
     Route: 041
     Dates: start: 20120730, end: 20120730
  4. GEMCITABINE HYDROCHLORIDE [Suspect]
     Dosage: 820 MG/M2, UID/QD
     Route: 041
     Dates: start: 20120817, end: 20120817
  5. GEMCITABINE HYDROCHLORIDE [Suspect]
     Dosage: 820 MG/M2, UID/QD
     Route: 041
     Dates: start: 20120824, end: 20120824
  6. GEMCITABINE HYDROCHLORIDE [Suspect]
     Dosage: 820 MG/M2, UID/QD
     Route: 041
     Dates: start: 20120907, end: 20120907
  7. GEMCITABINE HYDROCHLORIDE [Suspect]
     Dosage: 820 MG/M2, UID/QD
     Route: 041
     Dates: start: 20120914, end: 20120914
  8. GEMCITABINE HYDROCHLORIDE [Suspect]
     Dosage: 820 MG/M2, UID/QD
     Route: 041
     Dates: start: 20120928, end: 20120928
  9. GEMCITABINE HYDROCHLORIDE [Suspect]
     Dosage: 820 MG/M2, UID/QD
     Route: 041
     Dates: start: 20121005, end: 20121005
  10. GEMCITABINE HYDROCHLORIDE [Suspect]
     Dosage: 820 MG/M2, UID/QD
     Route: 041
     Dates: start: 20121019, end: 20121019
  11. GEMCITABINE HYDROCHLORIDE [Suspect]
     Dosage: 820 MG/M2, UID/QD
     Route: 041
     Dates: start: 20121026, end: 20121026
  12. GEMCITABINE HYDROCHLORIDE [Suspect]
     Dosage: 820 MG/M2, UID/QD
     Route: 041
     Dates: start: 20121109
  13. DIOVAN [Concomitant]
     Indication: PRODUCT USED FOR UNKNOWN INDICATION
     Dosage: 80 MG, UID/QD
     Route: 048
  14. AMLODIN [Concomitant]
     Indication: PRODUCT USED FOR UNKNOWN INDICATION
     Dosage: 5 MG, UID/QD
     Route: 048
  15. FORSENID                           /00571901/ [Concomitant]
     Indication: CONSTIPATION
     Dosage: 12 MG, UID/QD
     Route: 048
  16. OXYCONTIN [Concomitant]
     Indication: PRODUCT USED FOR UNKNOWN INDICATION
     Dosage: 20 MG, UID/QD
     Route: 048
     Dates: start: 20120720
  17. NOVAMIN                            /00013301/ [Concomitant]
     Indication: PRODUCT USED FOR UNKNOWN INDICATION
     Dosage: 15 MG, UID/QD
     Route: 048
     Dates: start: 20120720
  18. GASTER D [Concomitant]
     Indication: PRODUCT USED FOR UNKNOWN INDICATION
     Dosage: 40 MG, UID/QD
     Route: 048
     Dates: start: 20120720
  19. MYSLEE [Concomitant]
     Indication: INSOMNIA
     Dosage: 10 MG, UID/QD
     Route: 048
     Dates: start: 20120723
  20. HOCHUEKKITO [Concomitant]
     Indication: PRODUCT USED FOR UNKNOWN INDICATION
     Dosage: 5 G, UID/QD
     Route: 048
     Dates: start: 20120727

REACTIONS (5)
  - Interstitial lung disease [Recovering/Resolving]
  - Neutrophil count decreased [Recovered/Resolved]
  - Anaemia [Not Recovered/Not Resolved]
  - Rash [Recovering/Resolving]
  - Pruritus [Recovering/Resolving]
